FAERS Safety Report 9732986 (Version 2)
Quarter: 2013Q4

REPORT INFORMATION
  Report Type: Spontaneous
  Country: US (occurrence: US)
  Receive Date: 20131205
  Receipt Date: 20131205
  Transmission Date: 20140711
  Serious: Yes (Hospitalization)
  Sender: FDA-Public Use
  Company Number: US-BMSGILMSD-2009-0021590

PATIENT
  Age: 45 Year
  Sex: Male

DRUGS (6)
  1. ATRIPLA [Suspect]
     Indication: HIV INFECTION
     Dates: start: 20090401
  2. PAXIL [Concomitant]
  3. WELLBUTRIN [Concomitant]
  4. REMURON [Concomitant]
  5. TESTOSTERONE [Concomitant]
  6. VITAMINS [Concomitant]

REACTIONS (3)
  - Rash [Recovering/Resolving]
  - Abdominal discomfort [Unknown]
  - Blood creatinine increased [Recovered/Resolved]
